FAERS Safety Report 21840051 (Version 1)
Quarter: 2023Q1

REPORT INFORMATION
  Report Type: Other
  Country: US (occurrence: None)
  Receive Date: 20230110
  Receipt Date: 20230110
  Transmission Date: 20230418
  Serious: Yes (Other)
  Sender: FDA-Public Use
  Company Number: US-ROCHE-2962427

PATIENT
  Age: 55 Year
  Sex: Female
  Weight: 89.438 kg

DRUGS (2)
  1. OCREVUS [Suspect]
     Active Substance: OCRELIZUMAB
     Indication: Multiple sclerosis
     Dosage: DATE OF TREATMENT:21/JUN/2021,02/SEP/2022
     Route: 042
     Dates: start: 20170929
  2. VITAMIN D3 [Concomitant]
     Active Substance: CHOLECALCIFEROL
     Route: 048
     Dates: start: 2014

REACTIONS (18)
  - Amnesia [Not Recovered/Not Resolved]
  - Fatigue [Not Recovered/Not Resolved]
  - Dry eye [Unknown]
  - Eye pain [Not Recovered/Not Resolved]
  - Vision blurred [Not Recovered/Not Resolved]
  - Muscular weakness [Not Recovered/Not Resolved]
  - Paraesthesia [Not Recovered/Not Resolved]
  - Hypertension [Unknown]
  - Blood cholesterol increased [Not Recovered/Not Resolved]
  - Seasonal allergy [Not Recovered/Not Resolved]
  - Vulvovaginal dryness [Unknown]
  - Insomnia [Unknown]
  - Anxiety [Unknown]
  - Photopsia [Unknown]
  - Vitreous detachment [Unknown]
  - Mitral valve incompetence [Unknown]
  - COVID-19 [Unknown]
  - Stress [Unknown]

NARRATIVE: CASE EVENT DATE: 20210101
